FAERS Safety Report 4543690-5 (Version None)
Quarter: 2005Q1

REPORT INFORMATION
  Report Type: 
  Country: None (occurrence: None)
  Receive Date: 20050103
  Receipt Date: 20041130
  Transmission Date: 20050727
  Serious: Yes (Hospitalization)
  Sender: FDA-Public Use
  Company Number: DE-AMGEN-UK100957

PATIENT
  Sex: Male

DRUGS (9)
  1. ARANESP [Suspect]
     Indication: RENAL FAILURE CHRONIC
     Route: 042
     Dates: start: 20040830, end: 20041011
  2. DECORTIN-H [Concomitant]
     Route: 048
  3. ENALAPRIL [Concomitant]
     Route: 048
  4. BELOC ZOK [Concomitant]
     Route: 048
  5. CALCIUM ACETATE [Concomitant]
     Route: 048
  6. CALCITRIOL [Concomitant]
     Route: 048
  7. ANTI-PHOSPHAT [Concomitant]
     Route: 048
  8. MINOXIDIL [Concomitant]
     Route: 048
  9. MOXONIDINE [Concomitant]
     Route: 048

REACTIONS (1)
  - SHUNT OCCLUSION [None]
